FAERS Safety Report 11935225 (Version 1)
Quarter: 2016Q1

REPORT INFORMATION
  Report Type: Spontaneous
  Country: JP (occurrence: JP)
  Receive Date: 20160121
  Receipt Date: 20160121
  Transmission Date: 20160526
  Serious: Yes (Hospitalization)
  Sender: FDA-Public Use
  Company Number: JP-ASTRAZENECA-2016SE06149

PATIENT
  Age: 71 Year
  Sex: Male

DRUGS (24)
  1. CALTAN [Suspect]
     Active Substance: CALCIUM CARBONATE
     Indication: THERAPEUTIC PROCEDURE
     Route: 065
  2. DICLOFENAC SODIUM. [Concomitant]
     Active Substance: DICLOFENAC SODIUM
     Dates: start: 20150930, end: 20150930
  3. ETIZOLAM [Concomitant]
     Active Substance: ETIZOLAM
     Route: 048
     Dates: start: 20150930
  4. ALLELOCK [Concomitant]
     Active Substance: OLOPATADINE HYDROCHLORIDE
     Route: 048
     Dates: start: 20150930
  5. CALTAN [Suspect]
     Active Substance: CALCIUM CARBONATE
     Indication: THERAPEUTIC PROCEDURE
     Route: 048
     Dates: start: 20151003, end: 20151008
  6. TAMSULOSIN HYDROCHLORIDE. [Concomitant]
     Active Substance: TAMSULOSIN HYDROCHLORIDE
     Route: 048
     Dates: start: 20150930
  7. MEDROL [Concomitant]
     Active Substance: METHYLPREDNISOLONE
  8. LOCOID [Concomitant]
     Active Substance: HYDROCORTISONE BUTYRATE
     Dates: start: 20151016
  9. DICLOFENAC SODIUM. [Concomitant]
     Active Substance: DICLOFENAC SODIUM
     Dates: start: 20151007, end: 20151009
  10. YOUPATCH [Concomitant]
     Route: 062
     Dates: start: 20150930
  11. EPOGIN INJECTION [Concomitant]
     Dates: start: 20151002, end: 20151002
  12. EPOGIN INJECTION [Concomitant]
     Dates: start: 20151007, end: 20151007
  13. NIFEDIPINE CR [Concomitant]
     Active Substance: NIFEDIPINE
     Route: 048
     Dates: start: 20151003
  14. MEROPEN [Suspect]
     Active Substance: MEROPENEM
     Indication: PNEUMONIA
     Route: 042
     Dates: start: 20150930, end: 20151008
  15. EPOGIN INJECTION [Concomitant]
     Dates: start: 20151010, end: 20151010
  16. RINDERON V [Concomitant]
     Active Substance: BETAMETHASONE VALERATE
     Dates: start: 20151008
  17. FAMOTIDINE. [Concomitant]
     Active Substance: FAMOTIDINE
     Dates: start: 20150930
  18. EPOGIN INJECTION [Concomitant]
     Dates: start: 20150930, end: 20150930
  19. EPOGIN INJECTION [Concomitant]
     Dates: start: 20151005, end: 20151005
  20. NEOPHAGEN [Concomitant]
     Active Substance: GLYCYRRHIZIN
     Dates: start: 20151008
  21. VALSARTAN. [Concomitant]
     Active Substance: VALSARTAN
     Route: 048
     Dates: start: 20151003
  22. ALFACALCIDOL [Concomitant]
     Active Substance: ALFACALCIDOL
     Route: 048
     Dates: start: 20150930
  23. EPOGIN INJECTION [Concomitant]
     Dates: start: 20151012, end: 20151012
  24. SOLU-CORTEF [Concomitant]
     Active Substance: HYDROCORTISONE SODIUM SUCCINATE
     Dates: start: 20151008

REACTIONS (1)
  - Acute generalised exanthematous pustulosis [Recovering/Resolving]

NARRATIVE: CASE EVENT DATE: 20151008
